FAERS Safety Report 6247479-0 (Version None)
Quarter: 2009Q2

REPORT INFORMATION
  Report Type: 
  Country: None (occurrence: None)
  Receive Date: 20090626
  Receipt Date: 20090617
  Transmission Date: 20091009
  Serious: Yes (Disabling)
  Sender: FDA-Public Use
  Company Number: JP-ASTRAZENECA-2009SE02139

PATIENT
  Age: 941 Month
  Sex: Male
  Weight: 60 kg

DRUGS (15)
  1. IRESSA [Suspect]
     Indication: LUNG NEOPLASM MALIGNANT
     Route: 048
     Dates: start: 20081126, end: 20090424
  2. IRESSA [Suspect]
     Route: 048
     Dates: start: 20090429, end: 20090430
  3. IRESSA [Suspect]
     Route: 048
     Dates: start: 20090526, end: 20090530
  4. PLETAL [Concomitant]
     Indication: CEREBRAL INFARCTION
     Route: 048
     Dates: start: 20021128
  5. MEVALECT [Concomitant]
     Indication: HYPERLIPIDAEMIA
     Route: 048
     Dates: start: 20041216
  6. MAINHEART [Concomitant]
     Indication: ATRIAL FIBRILLATION
     Route: 048
     Dates: start: 20050524
  7. EBRANTIL [Concomitant]
     Indication: NEUROGENIC BLADDER
     Route: 048
     Dates: start: 20051031
  8. ITOROL [Concomitant]
     Indication: CARDIAC FAILURE CONGESTIVE
     Route: 048
     Dates: start: 20060131
  9. ALDACTONE [Concomitant]
     Indication: CARDIAC FAILURE CONGESTIVE
     Route: 048
     Dates: start: 20060609
  10. LASIX [Concomitant]
     Indication: CARDIAC FAILURE CONGESTIVE
     Route: 048
     Dates: start: 20070327
  11. MAGNESIUM OXIDE [Concomitant]
     Indication: LUNG NEOPLASM MALIGNANT
     Route: 048
     Dates: start: 20071105, end: 20090424
  12. MIYA [Concomitant]
     Indication: LUNG NEOPLASM MALIGNANT
     Route: 048
     Dates: start: 20071105
  13. CODEINE PHOSPHATE [Concomitant]
     Indication: LUNG NEOPLASM MALIGNANT
     Route: 048
     Dates: start: 20090317
  14. ALESION [Concomitant]
     Indication: ECZEMA
     Route: 048
     Dates: start: 20090317
  15. FOSMICIN [Concomitant]
     Indication: ENTERITIS INFECTIOUS
     Route: 048
     Dates: start: 20090425, end: 20090429

REACTIONS (4)
  - DIARRHOEA [None]
  - ECZEMA [None]
  - PNEUMATOSIS INTESTINALIS [None]
  - VOMITING [None]
